FAERS Safety Report 13180634 (Version 1)
Quarter: 2017Q1

REPORT INFORMATION
  Report Type: Report from Study
  Country: RO (occurrence: RO)
  Receive Date: 20170202
  Receipt Date: 20170202
  Transmission Date: 20170428
  Serious: Yes (Hospitalization)
  Sender: FDA-Public Use
  Company Number: RO-KADMON PHARMACEUTICALS, LLC-KAD201702-000296

PATIENT
  Sex: Female
  Weight: 104 kg

DRUGS (5)
  1. VIEKIRAX FILM-COATED TABLET [Suspect]
     Active Substance: OMBITASVIR\PARITAPREVIR\RITONAVIR
     Indication: CHRONIC HEPATITIS C
     Route: 048
     Dates: start: 20160913, end: 20161205
  2. NOLITERAX (PRETERAX ARGININE) [Concomitant]
     Indication: HYPERTENSION
     Route: 048
  3. RIBAVIRIN. [Suspect]
     Active Substance: RIBAVIRIN
     Indication: CHRONIC HEPATITIS C
     Route: 048
     Dates: start: 20160912, end: 20161011
  4. EXVIERA FILM-COATED TABLET [Suspect]
     Active Substance: DASABUVIR SODIUM MONOHYDRATE
     Indication: CHRONIC HEPATITIS C
     Route: 048
     Dates: start: 20160913, end: 20161205
  5. NEBILET [Concomitant]
     Active Substance: NEBIVOLOL
     Indication: HYPERTENSION
     Route: 048

REACTIONS (3)
  - Gastritis [Recovered/Resolved]
  - Anaemia [Recovered/Resolved]
  - Dyspepsia [Unknown]

NARRATIVE: CASE EVENT DATE: 20161001
